FAERS Safety Report 8350764-X (Version None)
Quarter: 2012Q2

REPORT INFORMATION
  Report Type: 
  Country: None (occurrence: None)
  Receive Date: 20120510
  Receipt Date: 20120503
  Transmission Date: 20120825
  Serious: Yes (Congenital Anomaly)
  Sender: FDA-Public Use
  Company Number: US-GLAXOSMITHKLINE-A0976992A

PATIENT
  Sex: Male

DRUGS (6)
  1. ZANTAC [Concomitant]
     Dates: start: 20000515
  2. BACTRIM DS [Concomitant]
  3. PREVACID [Concomitant]
     Dates: end: 20000515
  4. HYDROCODONE BITARTRATE AND ACETAMINOPHEN [Concomitant]
  5. ZYRTEC [Concomitant]
     Dates: start: 20000601
  6. PAXIL [Suspect]
     Indication: DEPRESSION
     Dosage: 20MG PER DAY
     Route: 064
     Dates: start: 20000214

REACTIONS (2)
  - CONGENITAL ANOMALY [None]
  - FOETAL EXPOSURE DURING PREGNANCY [None]
